FAERS Safety Report 19989700 (Version 3)
Quarter: 2024Q3

REPORT INFORMATION
  Report Type: Report from Study
  Country: GB (occurrence: GB)
  Receive Date: 20211025
  Receipt Date: 20240821
  Transmission Date: 20241017
  Serious: Yes (Hospitalization)
  Sender: ABBVIE
  Company Number: GB-ABBVIE-21K-167-4131349-00

PATIENT
  Age: 38 Year
  Sex: Male

DRUGS (11)
  1. SKYRIZI [Suspect]
     Active Substance: RISANKIZUMAB-RZAA
     Indication: Psoriasis
     Route: 058
     Dates: start: 20211015
  2. LEVETIRACETAM [Concomitant]
     Active Substance: LEVETIRACETAM
     Indication: Partial seizures
     Route: 048
     Dates: start: 20180703
  3. THIAMINE [Concomitant]
     Active Substance: THIAMINE
     Indication: Vitamin supplementation
     Route: 048
     Dates: start: 20190905
  4. SERTRALINE [Concomitant]
     Active Substance: SERTRALINE HYDROCHLORIDE
     Indication: Depression
     Route: 048
     Dates: start: 20220405
  5. VITAMIN B [Concomitant]
     Active Substance: VITAMIN B
     Indication: Vitamin supplementation
     Route: 048
     Dates: start: 20190905
  6. CANDESARTAN [Concomitant]
     Active Substance: CANDESARTAN
     Indication: Hypertension
     Route: 048
     Dates: start: 20170912
  7. ENSTILAR [Concomitant]
     Active Substance: BETAMETHASONE DIPROPIONATE\CALCIPOTRIENE HYDRATE
     Indication: Psoriasis
     Dosage: 50 UG/GM, TOPIC / SKIN / DERMAL SPRAY?AS NEEDED
     Dates: start: 20210809
  8. MINERAL OIL\PARAFFIN [Concomitant]
     Active Substance: MINERAL OIL\PARAFFIN
     Indication: Skin disorder
     Dosage: TOPIC / SKIN / DERMAL SPRAY?FREQUENCY TEXT: AS NEEDED
     Dates: start: 20200702, end: 20210825
  9. AMLODIPINE [Concomitant]
     Active Substance: AMLODIPINE BESYLATE
     Indication: Hypertension
     Route: 048
     Dates: start: 20240226
  10. ACITRETIN [Concomitant]
     Active Substance: ACITRETIN
     Indication: Psoriasis
     Route: 048
     Dates: start: 20211020, end: 20211124
  11. AMOXICILLIN\CLAVULANIC ACID [Concomitant]
     Active Substance: AMOXICILLIN\CLAVULANIC ACID
     Indication: Cellulitis
     Dosage: 500MG-125MG
     Route: 048
     Dates: start: 20240221, end: 20240301

REACTIONS (2)
  - Seizure [Recovered/Resolved]
  - Arthralgia [Recovered/Resolved]

NARRATIVE: CASE EVENT DATE: 20211018
